FAERS Safety Report 14593709 (Version 2)
Quarter: 2018Q2

REPORT INFORMATION
  Report Type: Spontaneous
  Country: ES (occurrence: ES)
  Receive Date: 20180302
  Receipt Date: 20180402
  Transmission Date: 20180711
  Serious: Yes (Other)
  Sender: FDA-Public Use
  Company Number: ES-BAYER-2018-040527

PATIENT
  Age: 46 Year
  Sex: Female

DRUGS (2)
  1. GADOVIST [Suspect]
     Active Substance: GADOBUTROL
     Indication: BREAST SCAN
     Dosage: 15 ML, ONCE
     Dates: start: 20180221, end: 20180221
  2. GADOVIST [Suspect]
     Active Substance: GADOBUTROL
     Indication: BREAST SCAN
     Dosage: 7.5 ML, ONCE
     Dates: start: 20180221, end: 20180221

REACTIONS (4)
  - Feeling abnormal [Recovered/Resolved]
  - Poor quality drug administered [None]
  - Pharyngeal oedema [Recovered/Resolved]
  - Dysphagia [Recovered/Resolved]

NARRATIVE: CASE EVENT DATE: 20180221
